FAERS Safety Report 17332352 (Version 1)
Quarter: 2020Q1

REPORT INFORMATION
  Report Type: Spontaneous
  Country: AU (occurrence: AU)
  Receive Date: 20200128
  Receipt Date: 20200128
  Transmission Date: 20200409
  Serious: Yes (Other)
  Sender: FDA-Public Use
  Company Number: AU-MYLANLABS-2020M1010222

PATIENT
  Age: 55 Year
  Sex: Male

DRUGS (8)
  1. TACROLIMUS. [Suspect]
     Active Substance: TACROLIMUS
     Indication: IMMUNOSUPPRESSION
     Dosage: 4 MILLIGRAM, BID
  2. PREDNISOLONE. [Interacting]
     Active Substance: PREDNISOLONE
     Indication: IMMUNOSUPPRESSION
     Dosage: 1 MILLIGRAM/KILOGRAM, QD
  3. TACROLIMUS. [Interacting]
     Active Substance: TACROLIMUS
     Dosage: 8 MILLIGRAM, BID
  4. EVEROLIMUS. [Interacting]
     Active Substance: EVEROLIMUS
     Indication: IMMUNOSUPPRESSION
     Dosage: UNK
  5. PREDNISOLONE. [Interacting]
     Active Substance: PREDNISOLONE
     Dosage: 5 MILLIGRAM, QD
  6. FLUCLOXACILLIN [Interacting]
     Active Substance: FLUCLOXACILLIN
     Indication: STAPHYLOCOCCAL BACTERAEMIA
     Dosage: 2 GRAM, Q4H
     Route: 042
  7. PREDNISOLONE. [Interacting]
     Active Substance: PREDNISOLONE
     Dosage: 20 MILLIGRAM, QD
  8. MYCOPHENOLATE MOFETIL. [Interacting]
     Active Substance: MYCOPHENOLATE MOFETIL
     Indication: IMMUNOSUPPRESSION
     Dosage: 1500 MILLIGRAM, BID

REACTIONS (3)
  - Therapeutic response decreased [Recovered/Resolved]
  - Heart transplant rejection [Unknown]
  - Drug interaction [Unknown]
